FAERS Safety Report 10871058 (Version 1)
Quarter: 2015Q1

REPORT INFORMATION
  Report Type: Spontaneous
  Country: US (occurrence: US)
  Receive Date: 20150226
  Receipt Date: 20150226
  Transmission Date: 20150721
  Serious: Yes (Death)
  Sender: FDA-Public Use
  Company Number: US-BANPHARM-20153562

PATIENT
  Age: 66 Year
  Sex: Male

DRUGS (5)
  1. RISPERIDONE. [Concomitant]
     Active Substance: RISPERIDONE
  2. SALICYLATE NOS [Concomitant]
  3. VALPROIC ACID UNKNOWN PRODUCT [Suspect]
     Active Substance: VALPROIC ACID
  4. DIPHENHYDRAMINE UNKNOWN PRODUCT [Concomitant]
     Active Substance: DIPHENHYDRAMINE
  5. MIRTAZAPINE. [Concomitant]
     Active Substance: MIRTAZAPINE

REACTIONS (2)
  - Completed suicide [Fatal]
  - Death [Fatal]
